FAERS Safety Report 20225062 (Version 4)
Quarter: 2022Q1

REPORT INFORMATION
  Report Type: Report from Study
  Country: CA (occurrence: CA)
  Receive Date: 20211223
  Receipt Date: 20220225
  Transmission Date: 20220423
  Serious: Yes (Hospitalization)
  Sender: FDA-Public Use
  Company Number: CA-JNJFOC-20211238563

PATIENT
  Age: 77 Year
  Sex: Male

DRUGS (1)
  1. IMBRUVICA [Suspect]
     Active Substance: IBRUTINIB
     Indication: Chronic lymphocytic leukaemia
     Route: 048
     Dates: start: 20210727

REACTIONS (4)
  - Cardiac failure congestive [Unknown]
  - Haemoptysis [Unknown]
  - Spinal fracture [Unknown]
  - Lung disorder [Unknown]

NARRATIVE: CASE EVENT DATE: 20211210
